FAERS Safety Report 6888829-1 (Version None)
Quarter: 2010Q3

REPORT INFORMATION
  Report Type: 
  Country: None (occurrence: None)
  Receive Date: 20100730
  Receipt Date: 20100727
  Transmission Date: 20110219
  Serious: Yes (Death)
  Sender: FDA-Public Use
  Company Number: CA-ABBOTT-10P-028-0659820-00

PATIENT
  Sex: Female

DRUGS (1)
  1. HUMIRA [Suspect]
     Indication: RHEUMATOID ARTHRITIS
     Route: 058
     Dates: start: 20070517, end: 20100623

REACTIONS (5)
  - BRAIN NEOPLASM MALIGNANT [None]
  - DISORIENTATION [None]
  - DIZZINESS [None]
  - LUNG NEOPLASM MALIGNANT [None]
  - MALAISE [None]
